FAERS Safety Report 6289648-X (Version None)
Quarter: 2009Q3

REPORT INFORMATION
  Report Type: 
  Country: None (occurrence: None)
  Receive Date: 20090730
  Receipt Date: 20090331
  Transmission Date: 20100115
  Serious: No
  Sender: FDA-Public Use
  Company Number: US-BRISTOL-MYERS SQUIBB COMPANY-13790829

PATIENT
  Sex: Female
  Weight: 61 kg

DRUGS (7)
  1. COUMADIN [Suspect]
  2. CRANBERRY JUICE [Suspect]
  3. SYNTHROID [Concomitant]
  4. LANOXIN [Concomitant]
  5. METOPROLOL TARTRATE [Concomitant]
  6. NEXIUM [Concomitant]
  7. CRESTOR [Concomitant]

REACTIONS (1)
  - INTERNATIONAL NORMALISED RATIO INCREASED [None]
